FAERS Safety Report 16726416 (Version 1)
Quarter: 2019Q3

REPORT INFORMATION
  Report Type: Spontaneous
  Country: FR (occurrence: FR)
  Receive Date: 20190821
  Receipt Date: 20190821
  Transmission Date: 20191005
  Serious: Yes (Other)
  Sender: FDA-Public Use
  Company Number: FR-MYLANLABS-2019M1078196

PATIENT
  Age: 54 Year
  Sex: Male

DRUGS (6)
  1. DIAZEPAM. [Interacting]
     Active Substance: DIAZEPAM
     Indication: ANXIETY
     Dosage: 30 MILLIGRAM, QD
     Route: 048
     Dates: start: 20181209
  2. CLOZAPINE. [Suspect]
     Active Substance: CLOZAPINE
     Indication: SCHIZOPHRENIA
     Dosage: 400 MILLIGRAM, QD
     Route: 048
     Dates: start: 20181209
  3. SCOPODERM                          /00008701/ [Interacting]
     Active Substance: SCOPOLAMINE
     Indication: SALIVARY HYPERSECRETION
     Dosage: 1 DOSAGE FORM, EVERY 72 HOURS
     Route: 062
     Dates: start: 20181227, end: 20190206
  4. HALDOL [Interacting]
     Active Substance: HALOPERIDOL
     Indication: SCHIZOPHRENIA
     Dosage: 30 MILLIGRAM, QD
     Route: 048
     Dates: start: 20181209
  5. LOXAPAC                            /00401801/ [Interacting]
     Active Substance: LOXAPINE
     Indication: PSYCHOTIC DISORDER
     Dosage: 100 MILLIGRAM, QD
     Route: 048
     Dates: start: 20181209, end: 20190107
  6. THERALENE [Interacting]
     Active Substance: TRIMEPRAZINE
     Indication: INSOMNIA
     Dosage: 30 MILLIGRAM, QD
     Route: 048
     Dates: start: 20181209, end: 20190104

REACTIONS (2)
  - Constipation [Recovered/Resolved]
  - Drug interaction [Unknown]

NARRATIVE: CASE EVENT DATE: 20181228
